FAERS Safety Report 11927616 (Version 1)
Quarter: 2016Q1

REPORT INFORMATION
  Report Type: Spontaneous
  Country: US (occurrence: US)
  Receive Date: 20160119
  Receipt Date: 20160119
  Transmission Date: 20160526
  Serious: No
  Sender: FDA-Public Use
  Company Number: US-PFIZER INC-2016015839

PATIENT
  Age: 53 Year
  Sex: Female

DRUGS (3)
  1. ASACOL [Suspect]
     Active Substance: MESALAMINE
     Dosage: UNK
  2. LYRICA [Suspect]
     Active Substance: PREGABALIN
     Dosage: UNK
  3. ENTOCORT [Suspect]
     Active Substance: BUDESONIDE
     Dosage: UNK

REACTIONS (1)
  - Drug hypersensitivity [Unknown]
